FAERS Safety Report 23171630 (Version 1)
Quarter: 2023Q4

REPORT INFORMATION
  Report Type: Report from Study
  Country: US (occurrence: US)
  Receive Date: 20231110
  Receipt Date: 20231110
  Transmission Date: 20240110
  Serious: Yes (Hospitalization, Other)
  Sender: FDA-Public Use
  Company Number: US-HORIZON THERAPEUTICS-HZN-2021-008252

PATIENT

DRUGS (3)
  1. RAVICTI [Suspect]
     Active Substance: GLYCEROL PHENYLBUTYRATE
     Indication: Ornithine transcarbamoylase deficiency
     Dosage: FIRST DOSE
     Route: 048
     Dates: start: 20140708
  2. RAVICTI [Suspect]
     Active Substance: GLYCEROL PHENYLBUTYRATE
     Indication: Urea cycle disorder
     Dosage: 5 ML BY MOUTH IN THE MORNING, 6 ML BY MOUTH IN MID DAY AND 6ML BY MOUTH IN THE EVENING WITH MEALS. T
     Route: 048
     Dates: start: 202307
  3. BUPHENYL [Suspect]
     Active Substance: SODIUM PHENYLBUTYRATE
     Indication: Product used for unknown indication
     Dosage: UNK
     Route: 065

REACTIONS (18)
  - Lethargy [Unknown]
  - Vomiting [Unknown]
  - Food aversion [Unknown]
  - Vomiting [Unknown]
  - Ammonia increased [Recovering/Resolving]
  - Malaise [Recovering/Resolving]
  - Hypophagia [Recovering/Resolving]
  - Hospitalisation [Unknown]
  - Seizure [Recovering/Resolving]
  - Colitis ulcerative [Unknown]
  - Drug intolerance [Unknown]
  - Insomnia [Recovering/Resolving]
  - Hepatic enzyme increased [Recovered/Resolved]
  - Hepatic steatosis [Recovering/Resolving]
  - Spleen disorder [Recovering/Resolving]
  - Influenza [Recovering/Resolving]
  - General physical health deterioration [Unknown]
  - Product supply issue [Unknown]

NARRATIVE: CASE EVENT DATE: 20230101
